FAERS Safety Report 10236929 (Version 1)
Quarter: 2014Q2

REPORT INFORMATION
  Report Type: Spontaneous
  Country: US (occurrence: US)
  Receive Date: 20140613
  Receipt Date: 20140613
  Transmission Date: 20141212
  Serious: Yes (Other)
  Sender: FDA-Public Use
  Company Number: US-PFIZER INC-2014162716

PATIENT
  Sex: Female

DRUGS (14)
  1. LYRICA [Suspect]
     Indication: FIBROMYALGIA
     Dosage: 100 MG, 2X/DAY
     Route: 048
     Dates: start: 2008
  2. LYRICA [Suspect]
     Indication: DIABETIC NEUROPATHY
  3. TRICOR [Concomitant]
     Indication: BLOOD CHOLESTEROL INCREASED
     Dosage: 145 MG, 1X/DAY
     Route: 048
     Dates: start: 2008
  4. TOPAMAX [Concomitant]
     Indication: MIGRAINE
     Dosage: 50 MG, 2X/DAY
     Route: 048
     Dates: start: 2008
  5. VITAMIN B12 [Concomitant]
     Dosage: 1000 UG, UNK
     Dates: start: 2008
  6. KLOTRIX [Concomitant]
     Indication: HYPOKALAEMIA
     Dosage: 10 MEQ, 1X/DAY
     Route: 048
     Dates: start: 2008
  7. INVEGA [Concomitant]
     Dosage: 3 MG, 1X/DAY
     Route: 048
     Dates: start: 2008
  8. SPIRIVA [Concomitant]
     Indication: CHRONIC OBSTRUCTIVE PULMONARY DISEASE
     Dosage: UNK, 1 PUFF TWO TIMES A DAY
     Dates: start: 2008
  9. SYMBICORT [Concomitant]
     Indication: CHRONIC OBSTRUCTIVE PULMONARY DISEASE
     Dosage: 80/4.5 UG, 2X/DAY
     Dates: start: 2008
  10. PROAIR HFA [Concomitant]
     Indication: ASTHMA
     Dosage: 180 UG INHALER 2 PUFFS , EVERY 4 HOURS
     Dates: start: 2008
  11. PATANOL [Concomitant]
     Indication: DRY EYE
     Dosage: 0.1% OPHTHALMIC SOLUTION ONE DROP IN EACH EYE, 2X/DAY
     Route: 047
     Dates: start: 2008
  12. SINGULAIR [Concomitant]
     Indication: HYPERSENSITIVITY
     Dosage: 10 MG, 1X/DAY
     Route: 048
     Dates: start: 2008
  13. ZOCOR [Concomitant]
     Indication: BLOOD CHOLESTEROL INCREASED
     Dosage: 40 MG, 1X/DAY
     Route: 048
     Dates: start: 2008
  14. ULTRACET [Concomitant]
     Dosage: 50 MG, 2X/DAY
     Route: 048
     Dates: start: 2008

REACTIONS (1)
  - Arthropathy [Unknown]
